FAERS Safety Report 17021679 (Version 8)
Quarter: 2020Q3

REPORT INFORMATION
  Report Type: Report from Study
  Country: HU (occurrence: HU)
  Receive Date: 20191112
  Receipt Date: 20200515
  Transmission Date: 20201105
  Serious: Yes (Death, Life-Threatening, Hospitalization)
  Sender: FDA-Public Use
  Company Number: NVSC2019HU026937

PATIENT
  Age: 64 Year
  Sex: Female
  Weight: 70 kg

DRUGS (31)
  1. CARBOPLATIN. [Suspect]
     Active Substance: CARBOPLATIN
     Indication: TRIPLE NEGATIVE BREAST CANCER
     Dosage: 699 MG, Q3W
     Route: 042
     Dates: start: 20190624, end: 20191007
  2. ORADEXON [Concomitant]
     Active Substance: DEXAMETHASONE
     Indication: CONFUSIONAL STATE
  3. MANNISOL [Concomitant]
     Indication: DIZZINESS
  4. LACTATED RINGERS SOLUTION [Concomitant]
     Active Substance: CALCIUM CHLORIDE\POTASSIUM CHLORIDE\SODIUM CHLORIDE\SODIUM LACTATE
     Indication: SUPPORTIVE CARE
     Dosage: UNK
     Route: 065
     Dates: start: 20191024, end: 20191024
  5. METOCLOPRAMIDE. [Concomitant]
     Active Substance: METOCLOPRAMIDE
     Indication: NAUSEA
     Dosage: UNK
     Route: 065
     Dates: start: 20191024, end: 20191024
  6. NACL.9% [Concomitant]
     Indication: NAUSEA
     Dosage: UNK
     Route: 065
     Dates: start: 20191106, end: 20191106
  7. CONTROLOC [Concomitant]
     Active Substance: PANTOPRAZOLE SODIUM
     Indication: DUODENITIS
     Dosage: UNK
     Route: 065
     Dates: start: 20191024
  8. MANNISOL [Concomitant]
     Indication: CONFUSIONAL STATE
  9. DEXAMETHASONE. [Concomitant]
     Active Substance: DEXAMETHASONE
     Indication: NAUSEA
     Dosage: UNK
     Route: 065
     Dates: start: 20191105, end: 20191105
  10. PANTOPRAZOLE [Concomitant]
     Active Substance: PANTOPRAZOLE
     Dosage: UNK
     Route: 065
     Dates: start: 20191106, end: 20191106
  11. DEXAMETASON [Concomitant]
     Active Substance: DEXAMETHASONE
     Indication: NAUSEA
     Dosage: UNK
     Route: 065
     Dates: start: 20191105, end: 20191105
  12. METOCLOPRAMIDE. [Concomitant]
     Active Substance: METOCLOPRAMIDE
     Dosage: UNK
     Route: 065
     Dates: start: 20191106, end: 20191106
  13. MANNITOL. [Concomitant]
     Active Substance: MANNITOL
     Indication: NAUSEA
  14. ORADEXON [Concomitant]
     Active Substance: DEXAMETHASONE
     Indication: OEDEMA
     Dosage: UNK
     Route: 065
     Dates: start: 20191101, end: 20191101
  15. CERUCAL [Concomitant]
     Active Substance: METOCLOPRAMIDE HYDROCHLORIDE
     Indication: DUODENITIS
     Dosage: UNK
     Route: 065
     Dates: start: 20191024
  16. CONTROLOC [Concomitant]
     Active Substance: PANTOPRAZOLE SODIUM
     Indication: CONFUSIONAL STATE
  17. ONDANSETRON [Concomitant]
     Active Substance: ONDANSETRON
     Indication: PRODUCT USED FOR UNKNOWN INDICATION
     Dosage: UNK
     Route: 065
     Dates: start: 20191007
  18. MANNITOL. [Concomitant]
     Active Substance: MANNITOL
     Indication: OEDEMA
     Dosage: UNK
     Route: 065
     Dates: start: 20191024, end: 20191024
  19. MANNITOL. [Concomitant]
     Active Substance: MANNITOL
     Indication: CONFUSIONAL STATE
     Dosage: UNK
     Route: 065
     Dates: start: 20191101, end: 20191102
  20. PANTOPRAZOLE [Concomitant]
     Active Substance: PANTOPRAZOLE
     Indication: NAUSEA
     Dosage: UNK
     Route: 065
     Dates: start: 20191024
  21. PANTOPRAZOLE [Concomitant]
     Active Substance: PANTOPRAZOLE
     Dosage: UNK
     Route: 065
     Dates: start: 20191105, end: 20191105
  22. GLUCOSE [Concomitant]
     Active Substance: DEXTROSE
     Indication: SUPPORTIVE CARE
     Dosage: 5 PERCENT
     Route: 065
     Dates: start: 20191024, end: 20191024
  23. NACL.9% [Concomitant]
     Indication: SUPPORTIVE CARE
     Dosage: UNK
     Route: 065
     Dates: start: 20191105, end: 20191105
  24. LAG525 [Suspect]
     Active Substance: IERAMILIMAB
     Indication: TRIPLE NEGATIVE BREAST CANCER
     Dosage: 400 MG, Q3W
     Route: 042
     Dates: start: 20190624, end: 20191007
  25. CERUCAL [Concomitant]
     Active Substance: METOCLOPRAMIDE HYDROCHLORIDE
     Indication: CONFUSIONAL STATE
  26. MANNISOL [Concomitant]
     Indication: OEDEMA
     Dosage: UNK
     Route: 065
     Dates: start: 20191101, end: 20191102
  27. LACTATED RINGERS SOLUTION [Concomitant]
     Active Substance: CALCIUM CHLORIDE\POTASSIUM CHLORIDE\SODIUM CHLORIDE\SODIUM LACTATE
     Dosage: UNK
     Route: 065
     Dates: start: 20191031, end: 20191031
  28. FILGRASTIM [Concomitant]
     Active Substance: FILGRASTIM
     Indication: PROPHYLAXIS
     Dosage: UNK
     Route: 065
     Dates: start: 20191008, end: 20191012
  29. ORADEXON [Concomitant]
     Active Substance: DEXAMETHASONE
     Indication: DIZZINESS
  30. METOCLOPRAMIDE. [Concomitant]
     Active Substance: METOCLOPRAMIDE
     Dosage: UNK
     Route: 065
     Dates: start: 20191105, end: 20191105
  31. HALOPERIDOL. [Concomitant]
     Active Substance: HALOPERIDOL
     Indication: TREMOR
     Dosage: UNK
     Route: 065
     Dates: start: 20191106, end: 20191106

REACTIONS (1)
  - Metastases to meninges [Fatal]

NARRATIVE: CASE EVENT DATE: 20191101
